FAERS Safety Report 14134404 (Version 1)
Quarter: 2017Q4

REPORT INFORMATION
  Report Type: Spontaneous
  Country: US (occurrence: US)
  Receive Date: 20171026
  Receipt Date: 20171026
  Transmission Date: 20180321
  Serious: No
  Sender: FDA-Public Use
  Company Number: US-TESARO, INC.-US-2017TSO02913

PATIENT

DRUGS (3)
  1. ZEJULA [Suspect]
     Active Substance: NIRAPARIB
     Indication: METASTASES TO LIVER
     Dosage: 300 MG, QD
     Route: 048
     Dates: start: 20170830
  2. ZEJULA [Suspect]
     Active Substance: NIRAPARIB
     Dosage: 200 MG, QD
     Route: 048
     Dates: start: 20170907
  3. ZEJULA [Suspect]
     Active Substance: NIRAPARIB
     Indication: OVARIAN CANCER RECURRENT
     Dosage: 200 MG, QD
     Route: 048
     Dates: start: 20170802

REACTIONS (11)
  - Dysgeusia [Unknown]
  - Product use in unapproved indication [Unknown]
  - Constipation [Unknown]
  - Nausea [Unknown]
  - Dizziness [Unknown]
  - Memory impairment [Unknown]
  - Neuropathy peripheral [Unknown]
  - Insomnia [Recovering/Resolving]
  - Arthralgia [Unknown]
  - Fatigue [Unknown]
  - Loss of personal independence in daily activities [Unknown]
